FAERS Safety Report 7648206-2 (Version None)
Quarter: 2011Q3

REPORT INFORMATION
  Report Type: 
  Country: None (occurrence: None)
  Receive Date: 20110801
  Receipt Date: 20110726
  Transmission Date: 20111222
  Serious: No
  Sender: FDA-Public Use
  Company Number: US-PFIZER INC-2011140906

PATIENT
  Sex: Male
  Weight: 88 kg

DRUGS (5)
  1. LIPITOR [Suspect]
     Indication: BLOOD CHOLESTEROL INCREASED
     Dosage: 20 MG, 1X/DAY
     Route: 048
     Dates: start: 20110516
  2. ZESTRIL [Suspect]
     Indication: HYPERTENSION
     Dosage: 20 MG, 1X/DAY
     Route: 048
     Dates: start: 20110301
  3. ARTHROTEC [Suspect]
     Indication: ARTHRALGIA
     Dosage: 75/200 MG, 1X/DAY
     Route: 048
     Dates: start: 20110421
  4. ACYCLOVIR [Concomitant]
     Dosage: 400 MG, UNK
  5. HYDROCHLOROTHIAZIDE [Suspect]
     Indication: HYPERTENSION
     Dosage: 25 MG, 1X/DAY
     Route: 048
     Dates: start: 20110301

REACTIONS (1)
  - DRUG SCREEN POSITIVE [None]
